FAERS Safety Report 8249206-4 (Version None)
Quarter: 2012Q1

REPORT INFORMATION
  Report Type: 
  Country: None (occurrence: None)
  Receive Date: 20120315
  Receipt Date: 20120306
  Transmission Date: 20120608
  Serious: Yes (Hospitalization, Other)
  Sender: FDA-Public Use
  Company Number: 2011029557

PATIENT
  Age: 42 Year
  Sex: Female
  Weight: 72.5755 kg

DRUGS (15)
  1. HIZENTRA [Suspect]
     Indication: CONGENITAL HYPOGAMMAGLOBULINAEMIA
     Dosage: 4 GM 20 ML VIA SUBCUTANEOUS
     Route: 058
     Dates: start: 20110316
  2. HIZENTRA [Suspect]
     Indication: CONGENITAL HYPOGAMMAGLOBULINAEMIA
     Dosage: 4 GM 20 ML VIAL SUBCUTANEOUS
     Route: 058
     Dates: start: 20110316
  3. DYAZIDE [Concomitant]
  4. XANAX [Concomitant]
  5. FLEXERIL [Concomitant]
  6. HIZENTRA [Suspect]
     Indication: CONGENITAL HYPOGAMMAGLOBULINAEMIA
     Dosage: 4 GM 20 ML VIAL; 2 SITES IN 1 HOUR SUBCUTANEOUS
     Route: 058
     Dates: start: 20111110
  7. NEXIUM [Concomitant]
  8. PILOCARPINE [Concomitant]
  9. IBUPROFEN [Concomitant]
  10. HYDROCODONE BT IBUPROFEN (HYDROCODONE W/IBUPROFEN) [Concomitant]
  11. HIZENTRA [Suspect]
     Indication: CONGENITAL HYPOGAMMAGLOBULINAEMIA
     Dosage: 8 G 1X/WEEK, 4GM 20 ML VIA; 40 ML IN 2-3 SITES SUBCUTANEOUS
     Route: 058
     Dates: start: 20110316
  12. TOPAMAX [Concomitant]
  13. DICYCLOMINE [Concomitant]
  14. WELLBUTRIN XL [Concomitant]
  15. PLAQUENIL [Concomitant]

REACTIONS (12)
  - VOMITING [None]
  - HEADACHE [None]
  - PRURITUS [None]
  - INFUSION SITE PRURITUS [None]
  - NAUSEA [None]
  - PYREXIA [None]
  - SINUSITIS [None]
  - NEPHROLITHIASIS [None]
  - NECK PAIN [None]
  - INFUSION SITE ERYTHEMA [None]
  - EYE INFECTION STAPHYLOCOCCAL [None]
  - BRONCHITIS [None]
